FAERS Safety Report 10185996 (Version 2)
Quarter: 2014Q2

REPORT INFORMATION
  Report Type: Report from Study
  Country: US (occurrence: US)
  Receive Date: 20140521
  Receipt Date: 20140630
  Transmission Date: 20141212
  Serious: Yes (Other)
  Sender: FDA-Public Use
  Company Number: US-ABBVIE-14P-163-1238830-00

PATIENT
  Age: 79 Year
  Sex: Male
  Weight: 88.08 kg

DRUGS (17)
  1. CREON [Suspect]
     Indication: LIPASE DECREASED
     Route: 048
     Dates: start: 2009
  2. DOMPERIDONE [Concomitant]
     Indication: IMPAIRED GASTRIC EMPTYING
  3. AMIODARONE [Concomitant]
     Indication: HEART RATE IRREGULAR
  4. INSPRA [Concomitant]
     Indication: DIURETIC THERAPY
  5. K-DUR [Concomitant]
     Indication: MINERAL SUPPLEMENTATION
  6. FISH OIL [Concomitant]
     Indication: BLOOD TRIGLYCERIDES INCREASED
  7. VITAMIN D [Concomitant]
     Indication: VITAMIN SUPPLEMENTATION
  8. MIRALAX [Concomitant]
     Indication: CONSTIPATION
  9. OMEPRAZOLE [Concomitant]
     Indication: GASTROOESOPHAGEAL REFLUX DISEASE
  10. OXYBUTYNIN [Concomitant]
     Indication: URINARY INCONTINENCE
  11. LORAZEPAM [Concomitant]
     Indication: ANXIETY
  12. ANTIVERT [Concomitant]
     Indication: DIZZINESS
  13. VALIUM [Concomitant]
     Indication: ANXIETY
  14. BAYER ASPIRIN [Concomitant]
     Indication: PRODUCT USED FOR UNKNOWN INDICATION
  15. BENADRYL [Concomitant]
     Indication: INSOMNIA
  16. CALTRATE [Concomitant]
     Indication: MINERAL SUPPLEMENTATION
  17. CENTRUM SILVER [Concomitant]
     Indication: VITAMIN SUPPLEMENTATION

REACTIONS (7)
  - Skin cancer [Recovered/Resolved]
  - Cellulitis [Unknown]
  - Dysuria [Unknown]
  - Blood urine present [Not Recovered/Not Resolved]
  - Urinary tract infection [Not Recovered/Not Resolved]
  - White blood cells urine [Recovered/Resolved]
  - Urinary tract disorder [Unknown]
